FAERS Safety Report 10141617 (Version 1)
Quarter: 2014Q2

REPORT INFORMATION
  Report Type: Spontaneous
  Country: GB (occurrence: GB)
  Receive Date: 20140429
  Receipt Date: 20140429
  Transmission Date: 20141212
  Serious: Yes (Other)
  Sender: FDA-Public Use
  Company Number: GB-MYLANLABS-2014S1008910

PATIENT
  Age: 59 Year
  Sex: Female
  Weight: 50 kg

DRUGS (4)
  1. TAMOXIFEN [Suspect]
  2. DOXYCYCLINE [Concomitant]
     Dates: start: 20140220
  3. ERYTHROMYCIN [Concomitant]
     Dates: start: 20140220, end: 20140327
  4. NARATRIPTAN [Concomitant]
     Dates: start: 20140123, end: 20140124

REACTIONS (1)
  - Maculopathy [Unknown]
